FAERS Safety Report 4909180-2 (Version None)
Quarter: 2006Q1

REPORT INFORMATION
  Report Type: 
  Country: None (occurrence: None)
  Receive Date: 20060208
  Receipt Date: 20060127
  Transmission Date: 20060701
  Serious: Yes (Hospitalization, Other)
  Sender: FDA-Public Use
  Company Number: 24206

PATIENT
  Age: 63 Year
  Sex: Male
  Weight: 104 kg

DRUGS (1)
  1. DACARBAZINE [Suspect]
     Indication: METASTATIC MALIGNANT MELANOMA
     Dosage: 2150 MG/IV
     Route: 042
     Dates: start: 20050809, end: 20051122

REACTIONS (3)
  - DEHYDRATION [None]
  - MENTAL STATUS CHANGES [None]
  - SINUSITIS [None]
